FAERS Safety Report 14380088 (Version 1)
Quarter: 2018Q1

REPORT INFORMATION
  Report Type: Spontaneous
  Country: BR (occurrence: BR)
  Receive Date: 20180112
  Receipt Date: 20180112
  Transmission Date: 20180509
  Serious: Yes (Other)
  Sender: FDA-Public Use
  Company Number: BR-AMGEN-BRASP2018002759

PATIENT
  Age: 69 Year
  Sex: Female
  Weight: 53 kg

DRUGS (9)
  1. PURAN [Concomitant]
     Active Substance: LEVOTHYROXINE SODIUM
     Indication: HYPOTHYROIDISM
     Dosage: UNK
  2. CONCOR [Concomitant]
     Active Substance: BISOPROLOL FUMARATE
     Indication: ARRHYTHMIA
     Dosage: 2.5 MG, 1/2 TABLET IN THE MORNING
     Dates: start: 2016
  3. POLYVITAMIN [Concomitant]
     Active Substance: VITAMINS
     Dosage: UNK UNK, QD
  4. CALCIUM + VITAMIN D [Concomitant]
     Active Substance: CALCIUM\VITAMIN D
     Dosage: UNK
  5. PROLIA [Suspect]
     Active Substance: DENOSUMAB
     Indication: OSTEOPOROSIS POSTMENOPAUSAL
     Dosage: 60 MG, UNK
     Route: 065
  6. ARADOIS [Concomitant]
     Active Substance: LOSARTAN POTASSIUM
     Indication: BLOOD PRESSURE ABNORMAL
     Dosage: 25 MG, UNK
     Dates: start: 2002
  7. LIPITOR [Concomitant]
     Active Substance: ATORVASTATIN CALCIUM
     Indication: BLOOD CHOLESTEROL ABNORMAL
     Dosage: 20 MG, QD
  8. GLUCOSAMINE [Concomitant]
     Active Substance: GLUCOSAMINE
     Indication: RHEUMATIC DISORDER
     Dosage: 1 SACHE PER DAY
  9. OMEGA 3,6,9 [Concomitant]
     Dosage: UNK UNK, QD

REACTIONS (9)
  - Tooth fracture [Unknown]
  - Gingival bleeding [Not Recovered/Not Resolved]
  - Rhinitis [Not Recovered/Not Resolved]
  - Impaired healing [Unknown]
  - Chondropathy [Not Recovered/Not Resolved]
  - Tooth extraction [Recovered/Resolved]
  - Pulpitis dental [Unknown]
  - Arrhythmia [Not Recovered/Not Resolved]
  - Tooth infection [Unknown]

NARRATIVE: CASE EVENT DATE: 2015
